FAERS Safety Report 14094272 (Version 1)
Quarter: 2017Q4

REPORT INFORMATION
  Report Type: Spontaneous
  Country: US (occurrence: US)
  Receive Date: 20171016
  Receipt Date: 20171016
  Transmission Date: 20180321
  Serious: No
  Sender: FDA-Public Use
  Company Number: US-SUNOVION-2017SUN004376

PATIENT
  Age: 23 Year
  Sex: Female

DRUGS (3)
  1. EFFEXOR [Concomitant]
     Active Substance: VENLAFAXINE HYDROCHLORIDE
  2. LATUDA [Suspect]
     Active Substance: LURASIDONE HYDROCHLORIDE
     Dosage: 80 MG, QD
     Route: 048
  3. LATUDA [Suspect]
     Active Substance: LURASIDONE HYDROCHLORIDE
     Indication: BIPOLAR DISORDER
     Dosage: 40 MG, QD
     Route: 048
     Dates: start: 20170925

REACTIONS (8)
  - Headache [Unknown]
  - Drug administration error [Unknown]
  - Feeling abnormal [Unknown]
  - Heart rate irregular [Unknown]
  - Palpitations [Unknown]
  - Hypertension [Unknown]
  - Psychomotor hyperactivity [Unknown]
  - Irritability [Unknown]
